FAERS Safety Report 23993137 (Version 1)
Quarter: 2024Q2

REPORT INFORMATION
  Report Type: Report from Study
  Country: BR (occurrence: BR)
  Receive Date: 20240620
  Receipt Date: 20240620
  Transmission Date: 20240715
  Serious: Yes (Life-Threatening, Other)
  Sender: FDA-Public Use
  Company Number: BR-AKCEA THERAPEUTICS, INC.-2024IS005234

PATIENT

DRUGS (1)
  1. TEGSEDI [Suspect]
     Active Substance: INOTERSEN SODIUM
     Indication: Hereditary neuropathic amyloidosis
     Dosage: 1 DOSAGE FORM, QOW  (A FULL SYRINGE), FORTNIGHTLY
     Route: 058
     Dates: start: 201701, end: 20220211

REACTIONS (5)
  - Neurogenic bladder [Not Recovered/Not Resolved]
  - Fear of death [Unknown]
  - Syncope [Not Recovered/Not Resolved]
  - Memory impairment [Unknown]
  - Off label use [Recovered/Resolved]

NARRATIVE: CASE EVENT DATE: 20220211
